FAERS Safety Report 9744223 (Version 1)
Quarter: 2013Q4

REPORT INFORMATION
  Report Type: Spontaneous
  Country: US (occurrence: US)
  Receive Date: 20131210
  Receipt Date: 20131210
  Transmission Date: 20140711
  Serious: No
  Sender: FDA-Public Use
  Company Number: US-BIOGENIDEC-2013BI100843

PATIENT
  Age: 65 Year
  Sex: Female

DRUGS (9)
  1. TECFIDERA [Suspect]
     Indication: MULTIPLE SCLEROSIS
  2. AMPYRA [Concomitant]
     Dates: start: 201309
  3. BONIVA [Concomitant]
  4. VITAMIN D3 [Concomitant]
  5. FISH OIL [Concomitant]
  6. VITAMIN B12 [Concomitant]
  7. VITAMIN C [Concomitant]
  8. TEMAZEPAM [Concomitant]
  9. GABAPENTIN [Concomitant]

REACTIONS (2)
  - Dizziness [Recovered/Resolved]
  - Nausea [Not Recovered/Not Resolved]
